FAERS Safety Report 5253276-5 (Version None)
Quarter: 2007Q1

REPORT INFORMATION
  Report Type: 
  Country: None (occurrence: None)
  Receive Date: 20070301
  Receipt Date: 20070220
  Transmission Date: 20070707
  Serious: Yes (Hospitalization, Other)
  Sender: FDA-Public Use
  Company Number: US-ELI_LILLY_AND_COMPANY-US200608001600

PATIENT
  Age: 79 Year
  Sex: Female

DRUGS (3)
  1. FORTEO [Suspect]
     Indication: OSTEOPOROSIS
     Dosage: UNK, UNK
     Dates: start: 20050101
  2. INDERAL [Concomitant]
     Indication: CARDIAC DISORDER
  3. COZAAR [Concomitant]
     Indication: CARDIAC DISORDER

REACTIONS (4)
  - BONE DENSITY DECREASED [None]
  - FALL [None]
  - JAW CYST [None]
  - UPPER LIMB FRACTURE [None]
